FAERS Safety Report 8973363 (Version 1)
Quarter: 2012Q4

REPORT INFORMATION
  Report Type: 
  Country: GB (occurrence: GB)
  Receive Date: 20121218
  Receipt Date: 20121218
  Transmission Date: 20130627
  Serious: Yes (Hospitalization, Other)
  Sender: FDA-Public Use
  Company Number: GB-PERRIGO-12GB010767

PATIENT
  Age: 69 Year
  Sex: Female
  Weight: 79 kg

DRUGS (2)
  1. NAPROXEN 250MG 16028/0144 [Suspect]
     Indication: ARTHRALGIA
     Dosage: 500 mg, UNK
     Route: 048
     Dates: start: 20121205, end: 20121206
  2. LATANOPROST [Concomitant]
     Indication: PRODUCT USED FOR UNKNOWN INDICATION
     Dosage: UNK
     Route: 065
     Dates: start: 201202

REACTIONS (4)
  - Anaphylactoid shock [Unknown]
  - Swollen tongue [Unknown]
  - Speech disorder [Unknown]
  - Dysphagia [Unknown]
